FAERS Safety Report 4886596-4 (Version None)
Quarter: 2006Q1

REPORT INFORMATION
  Report Type: 
  Country: None (occurrence: None)
  Receive Date: 20060118
  Receipt Date: 20060105
  Transmission Date: 20060701
  Serious: Yes (Hospitalization, Other)
  Sender: FDA-Public Use
  Company Number: US_980503263

PATIENT
  Age: 82 Year
  Sex: Male
  Weight: 65.5 kg

DRUGS (15)
  1. HUMALOG [Suspect]
     Indication: DIABETES MELLITUS
     Dosage: AS NEEDED, SUBCUTANEOUS; 4 U EACH MORNING; 4 U OTHER; 8 U EACH EVENING; 20 U, EACH EVENING
     Route: 058
     Dates: start: 19990101
  2. HUMULIN L [Suspect]
     Indication: DIABETES MELLITUS
     Dosage: 27 U, DAILY (1/D), SUBCUTANEOUS
     Route: 058
     Dates: start: 19840101
  3. HUMULIN R [Suspect]
     Indication: DIABETES MELLITUS
     Dosage: 12 U, DAILY (1/D), SUBCUTANEOUS
     Route: 058
     Dates: start: 19950101
  4. LANTUS [Concomitant]
  5. CATAPRES [Concomitant]
  6. CARDIZEM [Concomitant]
  7. CARDURA [Concomitant]
  8. UNIVASC [Concomitant]
  9. COZAAR [Concomitant]
  10. ASPIRIN [Concomitant]
  11. NEURONTIN [Concomitant]
  12. VITAMIN E [Concomitant]
  13. VITAMIN C (VITAMIN C) [Concomitant]
  14. MULTI-VITAMIN [Concomitant]
  15. ZINC (ZINC) [Concomitant]

REACTIONS (18)
  - BLINDNESS [None]
  - BLOOD GLUCOSE FLUCTUATION [None]
  - DIABETES MELLITUS INADEQUATE CONTROL [None]
  - EYE DISORDER [None]
  - EYE HAEMORRHAGE [None]
  - FALL [None]
  - FEELING ABNORMAL [None]
  - HEAD INJURY [None]
  - HYPERGLYCAEMIA [None]
  - HYPOGLYCAEMIA [None]
  - LOSS OF CONSCIOUSNESS [None]
  - MEMORY IMPAIRMENT [None]
  - MUSCLE SPASMS [None]
  - PROCEDURAL COMPLICATION [None]
  - RETINAL DISORDER [None]
  - SUBDURAL HAEMATOMA [None]
  - VISUAL ACUITY REDUCED [None]
  - WEIGHT INCREASED [None]
